FAERS Safety Report 23738687 (Version 2)
Quarter: 2024Q2

REPORT INFORMATION
  Report Type: Report from Study
  Country: JP (occurrence: JP)
  Receive Date: 20240412
  Receipt Date: 20240502
  Transmission Date: 20240716
  Serious: Yes (Death, Other)
  Sender: FDA-Public Use
  Company Number: JP-GENMAB-2023-02343

PATIENT
  Age: 61 Year
  Sex: Female
  Weight: 54.2 kg

DRUGS (20)
  1. EPKINLY [Suspect]
     Active Substance: EPCORITAMAB-BYSP
     Indication: Diffuse large B-cell lymphoma refractory
     Dosage: 0.16 MILLIGRAM, SINGLE
     Route: 058
     Dates: start: 20231124, end: 20231124
  2. EPKINLY [Suspect]
     Active Substance: EPCORITAMAB-BYSP
     Dosage: 0.8 MILLIGRAM, SINGLE
     Route: 058
     Dates: start: 20231201, end: 20231201
  3. EPKINLY [Suspect]
     Active Substance: EPCORITAMAB-BYSP
     Dosage: 48 MILLIGRAM
     Route: 058
     Dates: start: 20231211
  4. PREDNISOLONE [Concomitant]
     Active Substance: PREDNISOLONE
     Indication: Prophylaxis
     Dosage: 100 MILLIGRAM
     Dates: start: 20231124, end: 20231221
  5. PREDNISOLONE [Concomitant]
     Active Substance: PREDNISOLONE
     Dosage: 50 MILLIGRAM/DAY, DAY 1, DAY 2, DAY 3 AND DAY 4 OF ADMINISTRATION OF EPKINLY SUBCUTANEOUS INJECTION
     Dates: start: 20231225, end: 20240104
  6. PREDNISOLONE [Concomitant]
     Active Substance: PREDNISOLONE
     Dosage: 40 MILLIGRAM/DAY, DAY 1, DAY 2, DAY 3 AND DAY 4 OF ADMINISTRATION OF EPKINLY SUBCUTANEOUS INJECTION
     Dates: start: 20240108, end: 20240111
  7. PREDNISOLONE [Concomitant]
     Active Substance: PREDNISOLONE
     Dosage: 30 MILLIGRAM/DAY
     Dates: start: 20240115, end: 20240116
  8. PREDNISOLONE [Concomitant]
     Active Substance: PREDNISOLONE
     Dosage: 20 MILLIGRAM/DAY
     Dates: start: 20240117, end: 20240118
  9. PREDNISOLONE [Concomitant]
     Active Substance: PREDNISOLONE
     Dosage: UNK
     Dates: start: 20240122
  10. CALONAL [Concomitant]
     Active Substance: ACETAMINOPHEN
     Indication: Prophylaxis
     Dosage: 1000 MILLIGRAM/DAY, DAY 1 OF ADMINISTRATION OF EPKINLY SUBCUTANEOUS INJECTION (EPCORITAMAB) (GENETIC
     Dates: start: 20231124, end: 20240129
  11. DIPHENHYDRAMINE [Concomitant]
     Active Substance: DIPHENHYDRAMINE
     Indication: Prophylaxis
     Dosage: 50 MILLIGRAM,  DAY 1 OF ADMINISTRATION OF EPKINLY SUBCUTANEOUS INJECTION (EPCORITAMAB) (GENETICAL RE
     Dates: start: 20231124, end: 20240129
  12. MEROPENEM [Concomitant]
     Active Substance: MEROPENEM
     Dosage: 3 GRAM/DAY
     Dates: start: 20231124, end: 20231129
  13. MEROPENEM [Concomitant]
     Active Substance: MEROPENEM
     Dosage: 3 GRAM
     Dates: start: 20231208, end: 20231227
  14. LEVOFLOXACIN HEMIHYDRATE [Concomitant]
     Active Substance: LEVOFLOXACIN
     Dosage: 500 MILLIGRAM
     Dates: start: 20231130, end: 20231207
  15. LEVOFLOXACIN HEMIHYDRATE [Concomitant]
     Active Substance: LEVOFLOXACIN
     Dosage: 250 MILLIGRAM/DAY
     Dates: start: 20240111, end: 20240121
  16. CEFEPIME [Concomitant]
     Active Substance: CEFEPIME HYDROCHLORIDE
     Dosage: 3 GRAM/DAY
     Dates: start: 20231228, end: 20240110
  17. TEICOPLANIN [Concomitant]
     Active Substance: TEICOPLANIN
     Dosage: 200?400 MILLIGRAM/DAY
     Dates: start: 20231211, end: 20231226
  18. VORICONAZOLE [Concomitant]
     Active Substance: VORICONAZOLE
     Dosage: 300 MILLIGRAM/DAY (ADMINISTERED ON MONDAY, WEDNESDAY, AND FRIDAY)
     Dates: start: 20231124, end: 20240121
  19. ACYCLOVIR [Concomitant]
     Active Substance: ACYCLOVIR
     Dosage: 200 MILLIGRAM/DAY (ADMINISTERED ON MONDAY, WEDNESDAY, AND FRIDAY)
     Dates: start: 20231124, end: 20240121
  20. SULFAMETHOXAZOLE\TRIMETHOPRIM [Concomitant]
     Active Substance: SULFAMETHOXAZOLE\TRIMETHOPRIM
     Dosage: 0.5 TABLET (ADMINISTERED ON MONDAY, WEDNESDAY, AND FRIDAY)
     Dates: start: 20231124, end: 20240121

REACTIONS (3)
  - Diffuse large B-cell lymphoma refractory [Fatal]
  - Cytomegalovirus infection reactivation [Not Recovered/Not Resolved]
  - Cytokine release syndrome [Recovered/Resolved]

NARRATIVE: CASE EVENT DATE: 20231201
